FAERS Safety Report 16814248 (Version 1)
Quarter: 2019Q3

REPORT INFORMATION
  Report Type: Spontaneous
  Country: US (occurrence: US)
  Receive Date: 20190917
  Receipt Date: 20190917
  Transmission Date: 20191005
  Serious: No
  Sender: FDA-Public Use
  Company Number: US-ALLERGAN-1924766US

PATIENT
  Sex: Female

DRUGS (5)
  1. CREON [Concomitant]
     Active Substance: PANCRELIPASE AMYLASE\PANCRELIPASE LIPASE\PANCRELIPASE PROTEASE
     Dosage: BEFORE MEALS
  2. SUCRALFATE - BP [Suspect]
     Active Substance: SUCRALFATE
     Indication: PRODUCT USED FOR UNKNOWN INDICATION
     Dosage: UNK
     Route: 065
  3. PPI [Concomitant]
     Active Substance: UNSPECIFIED INGREDIENT
     Dosage: BEFORE MEALS
  4. VITAMIN D [Concomitant]
     Active Substance: VITAMIN D NOS
  5. OTHER UNSPECIFIED SUPPLEMENTS [Concomitant]

REACTIONS (4)
  - Inappropriate schedule of product administration [Unknown]
  - Tinnitus [Unknown]
  - Nasopharyngitis [Unknown]
  - Vertigo [Unknown]
